FAERS Safety Report 5662845-X (Version None)
Quarter: 2008Q1

REPORT INFORMATION
  Report Type: 
  Country: None (occurrence: None)
  Receive Date: 20080313
  Receipt Date: 20080303
  Transmission Date: 20080703
  Serious: Yes (Hospitalization)
  Sender: FDA-Public Use
  Company Number: US-KINGPHARMUSA00001-K200800272

PATIENT

DRUGS (15)
  1. ALTACE [Suspect]
     Dosage: 10 MG, QD
     Route: 048
  2. AVINZA [Suspect]
     Indication: SCIATICA
     Dosage: 60 MG, QD
     Route: 048
     Dates: start: 20070727, end: 20070801
  3. LASILIX /00032601/ [Suspect]
     Dosage: 40 MG, QD
     Route: 048
  4. AMARYL [Suspect]
     Dosage: 2 MG, QD
     Route: 048
  5. KARDEGIC /00002703/ [Suspect]
     Dosage: 75 MG, QD
     Route: 048
  6. PLAVIX [Suspect]
     Dosage: 75 MG, UNK
     Route: 048
  7. MIOREL [Suspect]
     Dosage: 12 MG, QD
     Route: 048
     Dates: start: 20070730, end: 20070801
  8. CARDENSIEL [Suspect]
     Dosage: 1.25 MG, QD
     Route: 048
  9. GLUCOPHAGE [Suspect]
     Dosage: 850 MG, UNK
     Route: 048
  10. TAHOR [Suspect]
     Dosage: 10 MG, QD
  11. SPIRIVA [Suspect]
     Dosage: 18 UG, QD
  12. SYMBICORT [Suspect]
     Dosage: 800 UG, QD
  13. NORSET [Suspect]
     Dosage: 30 MG, QD
     Route: 048
  14. LEVEMIR [Suspect]
     Dosage: 22 IU, QD
     Route: 058
  15. CORDARONE [Concomitant]
     Dosage: 200 MG, UNK
     Route: 048

REACTIONS (2)
  - BLADDER DISTENSION [None]
  - URINARY RETENTION [None]
